FAERS Safety Report 12463183 (Version 1)
Quarter: 2016Q2

REPORT INFORMATION
  Report Type: Spontaneous
  Country: JP (occurrence: JP)
  Receive Date: 20160614
  Receipt Date: 20160614
  Transmission Date: 20160815
  Serious: Yes (Other)
  Sender: FDA-Public Use
  Company Number: JP-MACLEODS PHARMACEUTICALS US LTD-MAC2016002804

PATIENT

DRUGS (3)
  1. CLOPIDOGREL [Suspect]
     Active Substance: CLOPIDOGREL BISULFATE
     Indication: CEREBRAL INFARCTION
     Dosage: UNK
     Route: 065
  2. PACLITAXEL. [Interacting]
     Active Substance: PACLITAXEL
     Indication: OVARIAN CANCER
     Dosage: 175MG/M^2, CYCLICAL, 3 WEEKS, 3 COURSES (TOTAL 1 TIME OF ADMINISTRATION)
     Route: 065
  3. CARBOPLATIN. [Concomitant]
     Active Substance: CARBOPLATIN
     Indication: OVARIAN CANCER
     Dosage: 175MG/M2 MILLIGRAM(S)/SQ. METER 3 WEEKS, 3 COURSES (CYCLICAL)
     Route: 065

REACTIONS (4)
  - Neutropenia [Unknown]
  - Drug interaction [Unknown]
  - Leukopenia [Unknown]
  - Febrile neutropenia [Unknown]
